FAERS Safety Report 5985209-8 (Version None)
Quarter: 2008Q4

REPORT INFORMATION
  Report Type: 
  Country: None (occurrence: None)
  Receive Date: 20081203
  Receipt Date: 20081119
  Transmission Date: 20090506
  Serious: Yes (Hospitalization)
  Sender: FDA-Public Use
  Company Number: KV200800606

PATIENT
  Age: 69 Year
  Sex: Female
  Weight: 63.5 kg

DRUGS (4)
  1. MORPHINE SULFATE [Suspect]
     Indication: ARTHRALGIA
     Dosage: 15 MG BID ORAL
     Route: 048
     Dates: start: 20080315, end: 20080322
  2. AVALIDE [Concomitant]
  3. JAUMET [Concomitant]
  4. LIPITOR [Concomitant]

REACTIONS (6)
  - ANOREXIA [None]
  - LOSS OF CONSCIOUSNESS [None]
  - NAUSEA [None]
  - PRODUCT QUALITY ISSUE [None]
  - VOMITING [None]
  - WEIGHT DECREASED [None]
